FAERS Safety Report 21126574 (Version 1)
Quarter: 2022Q3

REPORT INFORMATION
  Report Type: Spontaneous
  Country: US (occurrence: None)
  Receive Date: 20220725
  Receipt Date: 20220725
  Transmission Date: 20221026
  Serious: Yes (Hospitalization)
  Sender: FDA-Public Use
  Company Number: None

PATIENT
  Age: 80 Year
  Sex: Male

DRUGS (8)
  1. ESBRIET [Suspect]
     Active Substance: PIRFENIDONE
     Indication: Idiopathic pulmonary fibrosis
     Dosage: FREQUENCY : 3 TIMES A DAY;?
     Route: 048
     Dates: start: 20200124
  2. ASPIRIN LOW TAB [Concomitant]
  3. CO-Q 10 CAP OMEGA-3 [Concomitant]
  4. PIRFENIDONE [Concomitant]
     Active Substance: PIRFENIDONE
  5. PRAVASTATIN [Concomitant]
     Active Substance: PRAVASTATIN
  6. PRILOSEC OTC TAB [Concomitant]
  7. TURMERIC CAP [Concomitant]
  8. VIT B12/FA TAB [Concomitant]

REACTIONS (2)
  - Abdominal hernia repair [None]
  - Therapy interrupted [None]

NARRATIVE: CASE EVENT DATE: 20220711
